FAERS Safety Report 12335034 (Version 3)
Quarter: 2017Q1

REPORT INFORMATION
  Report Type: Report from Study
  Country: AU (occurrence: AU)
  Receive Date: 20160504
  Receipt Date: 20170213
  Transmission Date: 20170428
  Serious: Yes (Hospitalization)
  Sender: FDA-Public Use
  Company Number: AU-ROCHE-1723585

PATIENT
  Age: 67 Year
  Sex: Male
  Weight: 97 kg

DRUGS (10)
  1. VEMURAFENIB [Suspect]
     Active Substance: VEMURAFENIB
     Indication: MALIGNANT MELANOMA
     Route: 048
     Dates: start: 20130703
  2. VEMURAFENIB [Suspect]
     Active Substance: VEMURAFENIB
     Dosage: MOST RECENT DOSE OF VEMURAFENIB WAS ADMINISTERED ON 07/MAR/2016 PRIOR TO AE ONSET
     Route: 048
  3. NOVASONE [Concomitant]
     Active Substance: MOMETASONE FUROATE
     Indication: RASH MACULO-PAPULAR
     Route: 061
     Dates: start: 20130715
  4. BACTRIM DS [Concomitant]
     Active Substance: SULFAMETHOXAZOLE\TRIMETHOPRIM
     Indication: PROPHYLAXIS
     Route: 048
     Dates: start: 20160314, end: 20160502
  5. FEXOFENADINE [Concomitant]
     Active Substance: FEXOFENADINE\FEXOFENADINE HYDROCHLORIDE
     Indication: PRURITUS
     Route: 048
     Dates: start: 20130715
  6. BETAMETHASONE. [Concomitant]
     Active Substance: BETAMETHASONE
     Indication: ECZEMA
     Route: 061
     Dates: start: 20140408
  7. PANTOPRAZOLE [Concomitant]
     Active Substance: PANTOPRAZOLE SODIUM
     Indication: PROPHYLAXIS
     Route: 048
     Dates: start: 20160314, end: 20160502
  8. TIKOSYN [Concomitant]
     Active Substance: DOFETILIDE
     Indication: HYPERTENSION
     Route: 048
     Dates: start: 20131004
  9. TIKOSYN [Concomitant]
     Active Substance: DOFETILIDE
     Indication: PROPHYLAXIS
  10. COBIMETINIB [Suspect]
     Active Substance: COBIMETINIB
     Indication: MALIGNANT MELANOMA
     Dosage: MOST RECENT DOSE OF COBIMETINIB WAS ADMINISTERED ON 07/MAR/2016 PRIOR TO AE ONSET
     Route: 048
     Dates: start: 20130703

REACTIONS (1)
  - Hepatitis acute [Recovered/Resolved]

NARRATIVE: CASE EVENT DATE: 20160307
